FAERS Safety Report 4389882-X (Version None)
Quarter: 2004Q2

REPORT INFORMATION
  Report Type: 
  Country: None (occurrence: None)
  Receive Date: 20040630
  Receipt Date: 20040616
  Transmission Date: 20050107
  Serious: Yes (Death, Hospitalization)
  Sender: FDA-Public Use
  Company Number: NSADSS2001028415

PATIENT
  Age: 86 Year
  Sex: Female
  Weight: 48.0813 kg

DRUGS (4)
  1. REMICADE [Suspect]
     Indication: CROHN'S DISEASE
     Dosage: INTRAVENOUS DRIP
     Route: 041
  2. SELSODENE (ALL OTHER THERAPEUTIC PRODUCTS) [Concomitant]
  3. AMBIEN [Concomitant]
  4. FUROSEMIDE [Concomitant]

REACTIONS (5)
  - ABDOMINAL PAIN UPPER [None]
  - DYSPNOEA [None]
  - EATING DISORDER [None]
  - MUSCULOSKELETAL DISORDER [None]
  - PRURITUS [None]
